FAERS Safety Report 21962071 (Version 1)
Quarter: 2023Q1

REPORT INFORMATION
  Report Type: Spontaneous
  Country: CA (occurrence: CA)
  Receive Date: 20230207
  Receipt Date: 20230207
  Transmission Date: 20230418
  Serious: Yes (Death, Disabling, Other)
  Sender: FDA-Public Use
  Company Number: CA-002147023-NVSC2023CA026430

PATIENT
  Age: 48 Year
  Sex: Female
  Weight: 81 kg

DRUGS (5)
  1. DEXAMETHASONE [Suspect]
     Active Substance: DEXAMETHASONE
     Indication: Product used for unknown indication
     Dosage: 4 MG (1 EVERY 5 DAYS)
     Route: 048
  2. IPILIMUMAB [Suspect]
     Active Substance: IPILIMUMAB
     Indication: Product used for unknown indication
     Dosage: UNK
     Route: 065
  3. OPDIVO [Suspect]
     Active Substance: NIVOLUMAB
     Indication: Malignant melanoma
     Dosage: 1.0 MG/KG, Q3W
     Route: 042
  4. OPDIVO [Suspect]
     Active Substance: NIVOLUMAB
     Dosage: 216 MG, Q3W
     Route: 042
  5. OPDIVO [Suspect]
     Active Substance: NIVOLUMAB
     Dosage: 81 MG, Q3W
     Route: 042

REACTIONS (9)
  - Derealisation [Fatal]
  - Appetite disorder [Fatal]
  - Central nervous system lesion [Fatal]
  - Heart rate increased [Fatal]
  - Malignant neoplasm progression [Fatal]
  - Rash [Fatal]
  - Weight fluctuation [Fatal]
  - Weight increased [Fatal]
  - Off label use [Fatal]
